FAERS Safety Report 12414092 (Version 1)
Quarter: 2016Q2

REPORT INFORMATION
  Report Type: Spontaneous
  Country: US (occurrence: US)
  Receive Date: 20160527
  Receipt Date: 20160527
  Transmission Date: 20160815
  Serious: No
  Sender: FDA-Public Use
  Company Number: US-PRESTIUM-2015RN000076

PATIENT
  Age: 26 Year
  Sex: Male

DRUGS (1)
  1. ZONALON [Suspect]
     Active Substance: DOXEPIN HYDROCHLORIDE
     Indication: CONTUSION
     Dosage: UNK, BID FOR TWO WEEKS
     Route: 061

REACTIONS (4)
  - Penile pain [Not Recovered/Not Resolved]
  - Incorrect drug administration duration [Unknown]
  - Product use issue [Unknown]
  - Intentional product misuse [Unknown]

NARRATIVE: CASE EVENT DATE: 2015
